FAERS Safety Report 16625785 (Version 2)
Quarter: 2019Q3

REPORT INFORMATION
  Report Type: Spontaneous
  Country: JP (occurrence: JP)
  Receive Date: 20190724
  Receipt Date: 20190827
  Transmission Date: 20191004
  Serious: Yes (Other)
  Sender: FDA-Public Use
  Company Number: JP-CELGENEUS-JPN-20190708184

PATIENT
  Age: 69 Year
  Sex: Male
  Weight: 69 kg

DRUGS (7)
  1. ABRAXANE [Suspect]
     Active Substance: PACLITAXEL
     Dosage: 140 MILLIGRAM/SQ. METER
     Route: 041
     Dates: start: 20180628, end: 20180823
  2. DEXAMETHASONE SODIUM PHOSPHATE. [Concomitant]
     Active Substance: DEXAMETHASONE SODIUM PHOSPHATE
     Indication: PRODUCT USED FOR UNKNOWN INDICATION
     Dosage: 6.6 MILLIGRAM
     Route: 041
     Dates: start: 20180531, end: 20190228
  3. ABRAXANE [Suspect]
     Active Substance: PACLITAXEL
     Dosage: 125 MILLIGRAM/SQ. METER
     Route: 041
     Dates: start: 20180920, end: 20190228
  4. GEMCITABINE. [Concomitant]
     Active Substance: GEMCITABINE
     Dosage: 1400 MILLIGRAM
     Route: 041
     Dates: start: 20180628, end: 20180823
  5. ABRAXANE [Suspect]
     Active Substance: PACLITAXEL
     Indication: PANCREATIC CARCINOMA METASTATIC
     Dosage: 200 MILLIGRAM/SQ. METER
     Route: 041
     Dates: start: 20180531, end: 20180607
  6. GEMCITABINE. [Concomitant]
     Active Substance: GEMCITABINE
     Dosage: 1400 MILLIGRAM
     Route: 041
     Dates: start: 20180920, end: 20190228
  7. GEMCITABINE. [Concomitant]
     Active Substance: GEMCITABINE
     Indication: PANCREATIC CARCINOMA METASTATIC
     Dosage: 1700 MILLIGRAM
     Route: 041
     Dates: start: 20180531, end: 20180607

REACTIONS (2)
  - Nail disorder [Not Recovered/Not Resolved]
  - Paronychia [Unknown]

NARRATIVE: CASE EVENT DATE: 20180812
